FAERS Safety Report 9022134 (Version 2)
Quarter: 2013Q1

REPORT INFORMATION
  Report Type: Spontaneous
  Country: US (occurrence: US)
  Receive Date: 20130118
  Receipt Date: 20130305
  Transmission Date: 20140127
  Serious: Yes (Death, Congenital Anomaly, Other)
  Sender: FDA-Public Use
  Company Number: US-PFIZER INC-2013021995

PATIENT
  Sex: Male

DRUGS (4)
  1. SERTRALINE HCL [Suspect]
     Dosage: UNK
     Route: 064
     Dates: start: 20060724
  2. NATURE MADE [Concomitant]
     Dosage: UNK
     Route: 064
  3. EXPECTA VITAMINS [Concomitant]
     Dosage: UNK
     Route: 064
  4. TYLENOL [Concomitant]
     Dosage: UNK
     Route: 064

REACTIONS (3)
  - Maternal exposure timing unspecified [Fatal]
  - Transposition of the great vessels [Fatal]
  - Premature baby [Unknown]
